FAERS Safety Report 17085362 (Version 1)
Quarter: 2019Q4

REPORT INFORMATION
  Report Type: Spontaneous
  Country: US (occurrence: US)
  Receive Date: 20191127
  Receipt Date: 20191127
  Transmission Date: 20200122
  Serious: Yes (Hospitalization)
  Sender: FDA-Public Use
  Company Number: None

PATIENT
  Sex: Female

DRUGS (11)
  1. HYDROCODONE-APAP [Concomitant]
     Active Substance: ACETAMINOPHEN\HYDROCODONE
  2. METFORMIN [Concomitant]
     Active Substance: METFORMIN HYDROCHLORIDE
  3. METHOCARBAMOL. [Concomitant]
     Active Substance: METHOCARBAMOL
  4. TRAMADOL. [Concomitant]
     Active Substance: TRAMADOL
  5. YUVAFEM [Suspect]
     Active Substance: ESTRADIOL HEMIHYDRATE
     Dosage: ?          OTHER FREQUENCY:TWO TIMES A WEEK;?
     Route: 067
     Dates: start: 20190731
  6. CELECOXIB. [Concomitant]
     Active Substance: CELECOXIB
  7. TRIAMCINOLONE CRE 0.% [Concomitant]
  8. MINOCYCLINE [Concomitant]
     Active Substance: MINOCYCLINE HYDROCHLORIDE
  9. CAPECITABINE. [Suspect]
     Active Substance: CAPECITABINE
     Indication: RECTAL CANCER STAGE 0
     Dosage: ?          OTHER FREQUENCY:3 TABS BID M-F;?
     Route: 048
     Dates: start: 20190629
  10. GABAPENTIN. [Concomitant]
     Active Substance: GABAPENTIN
  11. ENOXAPARIN [Concomitant]
     Active Substance: ENOXAPARIN

REACTIONS (1)
  - Surgery [None]
